FAERS Safety Report 6599471-4 (Version None)
Quarter: 2010Q1

REPORT INFORMATION
  Report Type: 
  Country: None (occurrence: None)
  Receive Date: 20100224
  Receipt Date: 20100216
  Transmission Date: 20100710
  Serious: Yes (Other)
  Sender: FDA-Public Use
  Company Number: US-BAYER-201011913BCC

PATIENT
  Age: 89 Year
  Sex: Female
  Weight: 69 kg

DRUGS (4)
  1. ALEVE (CAPLET) [Suspect]
     Indication: BACK PAIN
     Dosage: TOTAL DAILY DOSE: 220 MG  UNIT DOSE: 220 MG
     Route: 048
     Dates: start: 20100213
  2. ALEVE (CAPLET) [Suspect]
     Dosage: UNIT DOSE: 220 MG
     Route: 048
     Dates: start: 20100216
  3. EPIDURAL TREATMENTS [Concomitant]
     Route: 008
     Dates: start: 20091224
  4. EPIDURAL TREATMENTS [Concomitant]
     Route: 008
     Dates: start: 20100104

REACTIONS (1)
  - FAECES DISCOLOURED [None]
